FAERS Safety Report 12103162 (Version 1)
Quarter: 2016Q1

REPORT INFORMATION
  Report Type: Other
  Country: US (occurrence: US)
  Receive Date: 20160222
  Receipt Date: 20160222
  Transmission Date: 20160526
  Serious: No
  Sender: FDA-Public Use
  Company Number: US-ACORDA-ACO_113347_2015

PATIENT
  Age: 56 Year
  Sex: Female

DRUGS (2)
  1. REBIF [Concomitant]
     Active Substance: INTERFERON BETA-1A
     Indication: MULTIPLE SCLEROSIS
     Dosage: MONDAY, WEDNESDAY, AND FRIDAY AT 9:30 AT NIGHT
     Route: 065
  2. AMPYRA [Suspect]
     Active Substance: DALFAMPRIDINE
     Indication: PRODUCT USED FOR UNKNOWN INDICATION
     Dosage: UNK
     Route: 065

REACTIONS (7)
  - Fall [Unknown]
  - Dizziness [Unknown]
  - Peroneal nerve palsy [Unknown]
  - Restlessness [Unknown]
  - Dyskinesia [Unknown]
  - Orthosis user [Unknown]
  - Limb discomfort [Unknown]

NARRATIVE: CASE EVENT DATE: 20121022
